FAERS Safety Report 12257127 (Version 2)
Quarter: 2016Q2

REPORT INFORMATION
  Report Type: Spontaneous
  Country: JP (occurrence: JP)
  Receive Date: 20160412
  Receipt Date: 20160428
  Transmission Date: 20160815
  Serious: Yes (Life-Threatening, Hospitalization)
  Sender: FDA-Public Use
  Company Number: JP-GE HEALTHCARE MEDICAL DIAGNOSTICS-OMPQ-PR-1604S-0455

PATIENT
  Age: 66 Year
  Sex: Male
  Weight: 65 kg

DRUGS (6)
  1. GOSHAJINKIGAN [Concomitant]
     Active Substance: HERBALS
  2. URSO [Concomitant]
     Active Substance: URSODIOL
  3. OMNIPAQUE [Suspect]
     Active Substance: IOHEXOL
     Indication: COLON CANCER
     Route: 042
     Dates: start: 20160405, end: 20160405
  4. RABEPRAZOLE NA [Concomitant]
     Active Substance: RABEPRAZOLE SODIUM
  5. OMNIPAQUE [Suspect]
     Active Substance: IOHEXOL
     Indication: DIAGNOSTIC PROCEDURE
  6. BIO-THREE [Concomitant]
     Active Substance: HERBALS

REACTIONS (3)
  - Seizure [Unknown]
  - Melaena [Not Recovered/Not Resolved]
  - Anaphylactic shock [Recovering/Resolving]

NARRATIVE: CASE EVENT DATE: 20160405
